FAERS Safety Report 13870311 (Version 2)
Quarter: 2017Q3

REPORT INFORMATION
  Report Type: Report from Study
  Country: US (occurrence: US)
  Receive Date: 20170815
  Receipt Date: 20170901
  Transmission Date: 20171127
  Serious: Yes (Death)
  Sender: FDA-Public Use
  Company Number: US-ACTELION-A-US2017-158066

PATIENT
  Age: 13 Month
  Sex: Female
  Weight: 7.26 kg

DRUGS (12)
  1. LASIX [Concomitant]
     Active Substance: FUROSEMIDE
     Dosage: 10 MG, Q6HRS
     Dates: end: 20170802
  2. METHYLPREDNISOLONE. [Concomitant]
     Active Substance: METHYLPREDNISOLONE
  3. TYVASO [Concomitant]
     Active Substance: TREPROSTINIL
  4. ASPIRIN. [Concomitant]
     Active Substance: ASPIRIN
     Dosage: 40.5 MG, QD
     Dates: end: 20170802
  5. POTASSIUM [Concomitant]
     Active Substance: POTASSIUM
     Dosage: 2.6 ML, BID
     Dates: end: 20170802
  6. EPINEPHRINE. [Concomitant]
     Active Substance: EPINEPHRINE
     Dosage: .20 MCG/KG, PER MIN
     Route: 042
  7. CEFTRIAXONE. [Concomitant]
     Active Substance: CEFTRIAXONE
     Dosage: 40.5 MG, UNK
  8. CLONIDINE. [Concomitant]
     Active Substance: CLONIDINE
     Dosage: 1.2 ML Q8H
  9. MAGONATE [Concomitant]
     Active Substance: MAGNESIUM CARBONATE
     Dosage: 5 ML, BID
     Dates: end: 20170802
  10. SPIRONOLACTONE. [Concomitant]
     Active Substance: SPIRONOLACTONE
     Dosage: 1.4 ML, BID
     Dates: end: 20170802
  11. REVATIO [Concomitant]
     Active Substance: SILDENAFIL CITRATE
     Dosage: 1.4 M/ML, Q6HRS
  12. TRACLEER [Suspect]
     Active Substance: BOSENTAN
     Indication: PULMONARY ARTERIAL HYPERTENSION
     Dosage: 62.5 MG, BID
     Route: 048
     Dates: end: 20170802

REACTIONS (4)
  - Brain injury [Fatal]
  - Respiratory arrest [Fatal]
  - Encephalopathy [Fatal]
  - Tracheostomy malfunction [Fatal]
